FAERS Safety Report 11477888 (Version 1)
Quarter: 2015Q3

REPORT INFORMATION
  Report Type: Spontaneous
  Country: GB (occurrence: GB)
  Receive Date: 20150909
  Receipt Date: 20150909
  Transmission Date: 20151125
  Serious: Yes (Other)
  Sender: FDA-Public Use
  Company Number: GB-ASTRAZENECA-2015SE85479

PATIENT
  Age: 61 Year
  Sex: Male

DRUGS (9)
  1. DAPAGLIFLOZIN [Suspect]
     Active Substance: DAPAGLIFLOZIN
     Indication: TYPE 2 DIABETES MELLITUS
     Route: 048
     Dates: start: 20150316
  2. DIHYDROCODEINE [Concomitant]
     Active Substance: DIHYDROCODEINE
  3. BISOPROLOL [Concomitant]
     Active Substance: BISOPROLOL
  4. LEVOTHYROXINE. [Concomitant]
     Active Substance: LEVOTHYROXINE
  5. ROSUVASTATIN [Concomitant]
     Active Substance: ROSUVASTATIN
  6. CLOPIDOGREL [Concomitant]
     Active Substance: CLOPIDOGREL BISULFATE
  7. GAVISCON [Concomitant]
     Active Substance: ALUMINUM HYDROXIDE\MAGNESIUM CARBONATE
  8. PARACETAMOL [Concomitant]
     Active Substance: ACETAMINOPHEN
  9. ZOTON [Concomitant]
     Active Substance: LANSOPRAZOLE

REACTIONS (3)
  - Feeling abnormal [Unknown]
  - Transient ischaemic attack [Unknown]
  - Hypoaesthesia oral [Unknown]

NARRATIVE: CASE EVENT DATE: 20150813
